FAERS Safety Report 10427896 (Version 2)
Quarter: 2014Q3

REPORT INFORMATION
  Report Type: Spontaneous
  Country: FR (occurrence: FR)
  Receive Date: 20140903
  Receipt Date: 20140903
  Transmission Date: 20150326
  Serious: Yes (Hospitalization)
  Sender: FDA-Public Use
  Company Number: FR-TEVA-492361ISR

PATIENT
  Age: 60 Year
  Sex: Male

DRUGS (7)
  1. DUROGESIC [Concomitant]
     Active Substance: FENTANYL
     Route: 023
     Dates: start: 201305, end: 201306
  2. DUROGESIC [Concomitant]
     Active Substance: FENTANYL
     Route: 023
     Dates: end: 201206
  3. ACTIQ [Suspect]
     Active Substance: FENTANYL CITRATE
     Route: 048
     Dates: end: 201308
  4. ACTIQ [Suspect]
     Active Substance: FENTANYL CITRATE
     Dosage: ONGOING
     Route: 048
     Dates: start: 201406
  5. ACTIQ [Suspect]
     Active Substance: FENTANYL CITRATE
     Route: 048
     Dates: start: 201308, end: 201406
  6. ACTIQ [Suspect]
     Active Substance: FENTANYL CITRATE
     Indication: PAIN
     Route: 048
     Dates: start: 201305
  7. DUROGESIC [Concomitant]
     Active Substance: FENTANYL
     Dosage: ONGOING
     Route: 023
     Dates: start: 201406

REACTIONS (3)
  - Hepatic encephalopathy [Unknown]
  - Malaise [Unknown]
  - Off label use [Not Recovered/Not Resolved]

NARRATIVE: CASE EVENT DATE: 201305
